FAERS Safety Report 7470969-X (Version None)
Quarter: 2011Q2

REPORT INFORMATION
  Report Type: 
  Country: None (occurrence: None)
  Receive Date: 20110502
  Receipt Date: 20110426
  Transmission Date: 20111010
  Serious: Yes (Life-Threatening, Hospitalization)
  Sender: FDA-Public Use
  Company Number: 2011SP015320

PATIENT
  Age: 85 Year
  Sex: Male

DRUGS (10)
  1. VESICARE [Concomitant]
  2. ORGARAN [Suspect]
     Indication: ANTICOAGULANT THERAPY
     Dosage: 2000 IU, BID, SC
     Route: 058
     Dates: start: 20110304
  3. ORGARAN [Suspect]
     Indication: ANTICOAGULANT THERAPY
     Dosage: 2000 IU, BID, SC
     Route: 058
     Dates: start: 20100225, end: 20110301
  4. VALSARTAN [Concomitant]
  5. SINTROM [Suspect]
     Indication: ANTICOAGULANT THERAPY
     Dosage: 2 MG, QD, PO
     Route: 048
     Dates: end: 20110301
  6. ZOCOR [Concomitant]
  7. ACETAMINOPHEN [Concomitant]
  8. FORLAX [Concomitant]
  9. ACETAMINOPHEN AND TRAMADOL HCL [Concomitant]
  10. AVODART [Concomitant]

REACTIONS (17)
  - HAEMODYNAMIC INSTABILITY [None]
  - ARRHYTHMIA [None]
  - RENAL FAILURE ACUTE [None]
  - ANAEMIA [None]
  - MONOPLEGIA [None]
  - CARDIAC FAILURE [None]
  - RETROPERITONEAL HAEMORRHAGE [None]
  - ATRIAL FIBRILLATION [None]
  - COGNITIVE DISORDER [None]
  - CONDITION AGGRAVATED [None]
  - HAEMOLYSIS [None]
  - URETHRAL DISORDER [None]
  - PYELOCALIECTASIS [None]
  - HYPERKALAEMIA [None]
  - NERVE COMPRESSION [None]
  - MALNUTRITION [None]
  - ABDOMINAL WALL HAEMATOMA [None]
